FAERS Safety Report 7957565-2 (Version None)
Quarter: 2011Q4

REPORT INFORMATION
  Report Type: 
  Country: None (occurrence: None)
  Receive Date: 20111205
  Receipt Date: 20111128
  Transmission Date: 20120403
  Serious: Yes (Hospitalization)
  Sender: FDA-Public Use
  Company Number: JP-GLAXOSMITHKLINE-B0764268A

PATIENT
  Sex: Male

DRUGS (7)
  1. DOGMATYL [Concomitant]
     Dosage: 900MG PER DAY
     Route: 048
  2. NIFELANTERN CR [Concomitant]
     Dosage: 20MG PER DAY
     Route: 048
  3. PROMAC [Concomitant]
     Dosage: 300MG PER DAY
     Route: 048
  4. REQUIP [Suspect]
     Indication: RESTLESS LEGS SYNDROME
     Dosage: 1MG PER DAY
     Route: 048
     Dates: start: 20110524, end: 20111117
  5. CHINESE MEDICINE [Concomitant]
     Route: 048
  6. NIZATIDINE [Concomitant]
     Dosage: 300MG PER DAY
     Route: 048
  7. ASPIRIN [Concomitant]
     Dosage: 100MG PER DAY
     Route: 048

REACTIONS (2)
  - MUSCLE SPASMS [None]
  - CONVULSION [None]
